FAERS Safety Report 5274530-7 (Version None)
Quarter: 2007Q1

REPORT INFORMATION
  Report Type: 
  Country: None (occurrence: None)
  Receive Date: 20070323
  Receipt Date: 20070314
  Transmission Date: 20070707
  Serious: Yes (Disabling)
  Sender: FDA-Public Use
  Company Number: FR-PFIZER INC-2007019849

PATIENT
  Age: 53 Year
  Sex: Male

DRUGS (1)
  1. TAHOR [Suspect]

REACTIONS (1)
  - ABASIA [None]
